FAERS Safety Report 5106239-4 (Version None)
Quarter: 2006Q3

REPORT INFORMATION
  Report Type: 
  Country: None (occurrence: None)
  Receive Date: 20060918
  Receipt Date: 20060907
  Transmission Date: 20061208
  Serious: Yes (Death)
  Sender: FDA-Public Use
  Company Number: DE-BAYER-200611178BVD

PATIENT
  Age: 57 Year
  Sex: Male

DRUGS (8)
  1. AVELOX [Suspect]
     Indication: BRONCHITIS ACUTE
     Route: 048
     Dates: start: 20060612, end: 20060616
  2. DIGIMERCK [Concomitant]
  3. HCT [Concomitant]
  4. TORSEMIDE [Concomitant]
  5. MARCUMAR [Concomitant]
  6. METFORMIN [Concomitant]
  7. AMARYL [Concomitant]
  8. ALLOPURINOL [Concomitant]

REACTIONS (1)
  - CARDIAC ARREST [None]
